FAERS Safety Report 11275366 (Version 1)
Quarter: 2015Q3

REPORT INFORMATION
  Report Type: Spontaneous
  Country: US (occurrence: None)
  Receive Date: 20150714
  Receipt Date: 20150714
  Transmission Date: 20151125
  Serious: Yes (Hospitalization)
  Sender: FDA-Public Use
  Company Number: 2015SMT00161

PATIENT
  Age: 57 Year
  Sex: Male
  Weight: 93 kg

DRUGS (6)
  1. METFORMIN [Concomitant]
     Active Substance: METFORMIN HYDROCHLORIDE
  2. ASPIRIN (ACETYLSALICYLIC ACID) [Concomitant]
     Active Substance: ASPIRIN
  3. REGRANEX [Suspect]
     Active Substance: BECAPLERMIN
     Indication: SKIN ULCER
     Route: 061
     Dates: start: 20150601, end: 201506
  4. GLIMEPIRIDE (GLIMEPIRIDE) [Concomitant]
     Active Substance: GLIMEPIRIDE
  5. PLAVIX (CLOPIDOGREL BUSULFATE) [Concomitant]
  6. PANTOPRAZOLE (PANTOPRAZOLE) [Concomitant]
     Active Substance: PANTOPRAZOLE SODIUM

REACTIONS (5)
  - Blister [None]
  - Foot amputation [None]
  - Stent placement [None]
  - Localised infection [None]
  - Blood test abnormal [None]

NARRATIVE: CASE EVENT DATE: 201506
